FAERS Safety Report 9988273 (Version 1)
Quarter: 2014Q1

REPORT INFORMATION
  Report Type: Spontaneous
  Country: US (occurrence: US)
  Receive Date: 20140310
  Receipt Date: 20140310
  Transmission Date: 20141002
  Serious: No
  Sender: FDA-Public Use
  Company Number: US-009507513-1402USA007540

PATIENT
  Age: 80 Year
  Sex: Female

DRUGS (2)
  1. PROVENTIL [Suspect]
     Indication: SEASONAL ALLERGY
     Dosage: NEBULIZED ALBUTEROL VIA MOUTHPIECE THREE TIMES A DAY
     Route: 055
  2. AQUAPHOR OINTMENT [Suspect]

REACTIONS (2)
  - Flushing [Recovered/Resolved]
  - Angioedema [Recovered/Resolved]
